FAERS Safety Report 10256472 (Version 1)
Quarter: 2014Q2

REPORT INFORMATION
  Report Type: Report from Study
  Country: FR (occurrence: FR)
  Receive Date: 20140624
  Receipt Date: 20140624
  Transmission Date: 20141212
  Serious: Yes (Other)
  Sender: FDA-Public Use
  Company Number: FR-JNJFOC-20130706774

PATIENT
  Sex: Male
  Weight: 121 kg

DRUGS (11)
  1. XARELTO [Suspect]
     Indication: THROMBOSIS PROPHYLAXIS
     Route: 048
     Dates: start: 20130516, end: 20130624
  2. XARELTO [Suspect]
     Indication: THROMBOSIS PROPHYLAXIS
     Route: 048
     Dates: start: 20130425, end: 20130515
  3. XARELTO [Suspect]
     Indication: DEEP VEIN THROMBOSIS
     Route: 048
     Dates: start: 20130516, end: 20130624
  4. XARELTO [Suspect]
     Indication: DEEP VEIN THROMBOSIS
     Route: 048
     Dates: start: 20130425, end: 20130515
  5. PARACETAMOL [Concomitant]
     Route: 065
     Dates: start: 20130424, end: 20130429
  6. HEPARIN-FRACTION [Concomitant]
     Route: 065
     Dates: start: 20130624, end: 201306
  7. HEPARIN-FRACTION [Concomitant]
     Route: 065
     Dates: start: 20130422, end: 20130424
  8. HEPARIN [Concomitant]
     Route: 065
     Dates: start: 20130424, end: 20130425
  9. WARFARIN [Concomitant]
     Route: 065
     Dates: start: 201306
  10. FLUINDIONE [Concomitant]
     Route: 065
     Dates: start: 2012, end: 20121210
  11. TRANSIPEG [Concomitant]
     Route: 065
     Dates: start: 20130429, end: 20130429

REACTIONS (1)
  - Deep vein thrombosis [Recovering/Resolving]
